FAERS Safety Report 9403327 (Version 4)
Quarter: 2013Q4

REPORT INFORMATION
  Report Type: Spontaneous
  Country: US (occurrence: US)
  Receive Date: 20130716
  Receipt Date: 20131009
  Transmission Date: 20140711
  Serious: No
  Sender: FDA-Public Use
  Company Number: US-009507513-1307USA002295

PATIENT
  Sex: Male

DRUGS (11)
  1. REBETOL [Suspect]
     Indication: CHRONIC HEPATITIS C
     Dosage: 1200 MG, QD, 1 IN 1 D
     Route: 048
     Dates: start: 20130523
  2. VICTRELIS [Suspect]
     Indication: CHRONIC HEPATITIS C
     Dosage: 4 DF, TID 3 IN 1 D
     Route: 065
     Dates: start: 20130727
  3. PEGASYS [Suspect]
     Indication: CHRONIC HEPATITIS C
     Dosage: 180 MICROGRAM, QW (PRE-FILLED SYRINGE)
     Route: 058
     Dates: start: 20130523
  4. CLONAZEPAM [Suspect]
     Indication: ANXIETY DISORDER
  5. KLONOPIN [Concomitant]
     Indication: ANXIETY DISORDER
  6. DIOVAN [Concomitant]
     Indication: HYPERTENSION
  7. NORVASC [Concomitant]
     Indication: HYPERTENSION
  8. ABILIFY [Concomitant]
     Indication: DEPRESSION
  9. WELLBUTRIN [Concomitant]
     Indication: DEPRESSION
  10. ABILIFY [Concomitant]
     Indication: DEPRESSION
  11. WELLBUTRIN [Concomitant]
     Indication: DEPRESSION

REACTIONS (22)
  - Sleep disorder [Unknown]
  - Rash [Not Recovered/Not Resolved]
  - Fungal infection [Recovered/Resolved]
  - Anorectal discomfort [Recovering/Resolving]
  - Fatigue [Unknown]
  - Depression [Unknown]
  - Blood sodium decreased [Unknown]
  - Stomatitis [Recovered/Resolved]
  - Increased tendency to bruise [Unknown]
  - Irritability [Unknown]
  - Vision blurred [Unknown]
  - Nausea [Recovering/Resolving]
  - Decreased appetite [Unknown]
  - Injection site bruising [Unknown]
  - Abdominal discomfort [Unknown]
  - Feeling abnormal [Unknown]
  - Spinal pain [Unknown]
  - Oral fungal infection [Unknown]
  - Burning sensation [Unknown]
  - Anaemia [Unknown]
  - Dysgeusia [Unknown]
  - Weight decreased [Unknown]
